FAERS Safety Report 9512036 (Version 1)
Quarter: 2013Q1

REPORT INFORMATION
  Report Type: Spontaneous
  Country: US (occurrence: None)
  Receive Date: 20130305
  Receipt Date: 20130305
  Transmission Date: 20140127
  Serious: Yes (Hospitalization, Other)
  Sender: FDA-Public Use
  Company Number: 163-21880-11120163

PATIENT
  Age: 68 Year
  Sex: Male

DRUGS (2)
  1. REVLIMID [Suspect]
     Indication: PLASMA CELL MYELOMA
     Dosage: 10 MG, EVERY OTHER DAY FOR 21 DAYS OF 28 DAYS, PO?
     Route: 048
     Dates: start: 20100511, end: 20101001
  2. ALBUTEROL (SALBUTAMOL) [Concomitant]

REACTIONS (3)
  - Pancytopenia [None]
  - Bronchitis [None]
  - Leukopenia [None]
